FAERS Safety Report 8186940-9 (Version None)
Quarter: 2012Q1

REPORT INFORMATION
  Report Type: 
  Country: None (occurrence: None)
  Receive Date: 20120213
  Receipt Date: 20111107
  Transmission Date: 20120608
  Serious: No
  Sender: FDA-Public Use
  Company Number: 1000025301

PATIENT
  Age: 38 Year
  Sex: Male

DRUGS (7)
  1. SAVELLA [Suspect]
     Indication: FIBROMYALGIA
     Dosage: SEE IMAGE
     Route: 048
     Dates: start: 20111001, end: 20111001
  2. SAVELLA [Suspect]
     Indication: FIBROMYALGIA
     Dosage: SEE IMAGE
     Route: 048
     Dates: start: 20111001, end: 20110101
  3. SAVELLA [Suspect]
     Indication: FIBROMYALGIA
     Dosage: SEE IMAGE
     Route: 048
     Dates: start: 20110101, end: 20110101
  4. SAVELLA [Suspect]
     Indication: FIBROMYALGIA
     Dosage: SEE IMAGE
     Route: 048
     Dates: start: 20110101
  5. VITAMIN D (VITAMIN D) (VITAMIN D) [Concomitant]
  6. DEXILANT (DEXANSOPRAZOLE) (DEXLANSOPRAZOLE) [Concomitant]
  7. VITAMIN B12 (VITAMIN B12) (VITAMIN B12) [Concomitant]

REACTIONS (2)
  - EJACULATION FAILURE [None]
  - ORGASM ABNORMAL [None]
